FAERS Safety Report 22270518 (Version 1)
Quarter: 2023Q2

REPORT INFORMATION
  Report Type: Spontaneous
  Country: US (occurrence: None)
  Receive Date: 20230428
  Receipt Date: 20230428
  Transmission Date: 20230721
  Serious: Yes (Other)
  Sender: FDA-Public Use
  Company Number: None

PATIENT
  Age: 46 Year
  Sex: Male

DRUGS (9)
  1. FABRAZYME [Suspect]
     Active Substance: AGALSIDASE BETA
     Indication: Fabry^s disease
     Dosage: FREQUENCY : AS DIRECTED;?RECONSTITUTE EACH 35 MG VIAL WITH 7.2 ML SWFI; ONE VIAL NEEDED PER DOSE. WI
     Route: 042
     Dates: start: 20210223
  2. DIPHENHYDRAMINE SDV [Concomitant]
  3. EPINEPHRINE PEN 0.3 MG  (2=) [Concomitant]
  4. EPINEPHRINE 1MG/ML (1ML/AMP) [Concomitant]
  5. SOD CHL 0.9% 250 ML/BAG [Concomitant]
  6. SOD CHL 0.9% 1000 ML/BAG [Concomitant]
  7. SOD CHL 0.9% FLSH 10ML/SYR [Concomitant]
  8. SOD CHL 0.9% STRL FLSH 10ML/SYR [Concomitant]
  9. STERILE WATER SDV LF [Concomitant]

REACTIONS (1)
  - Renal transplant [None]

NARRATIVE: CASE EVENT DATE: 20230414
